FAERS Safety Report 8563711-2 (Version None)
Quarter: 2012Q3

REPORT INFORMATION
  Report Type: 
  Country: None (occurrence: None)
  Receive Date: 20120803
  Receipt Date: 20120725
  Transmission Date: 20120928
  Serious: No
  Sender: FDA-Public Use
  Company Number: US-BIOGENIDEC-2012BI024997

PATIENT
  Sex: Female

DRUGS (1)
  1. AVONEX [Suspect]
     Indication: MULTIPLE SCLEROSIS
     Route: 030
     Dates: start: 20120101

REACTIONS (15)
  - NASAL CONGESTION [None]
  - THROAT TIGHTNESS [None]
  - FATIGUE [None]
  - ASTHENIA [None]
  - COUGH [None]
  - DIPLOPIA [None]
  - HYPOAESTHESIA [None]
  - FEELING ABNORMAL [None]
  - READING DISORDER [None]
  - TREMOR [None]
  - INFLUENZA LIKE ILLNESS [None]
  - HYPERHIDROSIS [None]
  - OEDEMA PERIPHERAL [None]
  - DYSGRAPHIA [None]
  - DRY MOUTH [None]
